FAERS Safety Report 9520985 (Version 1)
Quarter: 2013Q3

REPORT INFORMATION
  Report Type: Spontaneous
  Country: US (occurrence: US)
  Receive Date: 20130913
  Receipt Date: 20130913
  Transmission Date: 20140515
  Serious: No
  Sender: FDA-Public Use
  Company Number: US-PFIZER INC-2013262708

PATIENT
  Age: 70 Year
  Sex: Female

DRUGS (2)
  1. INDERAL LA [Suspect]
     Indication: ARRHYTHMIA
     Dosage: 80 MG, DAILY
     Route: 048
     Dates: start: 20130813
  2. PREVACID [Concomitant]
     Dosage: UNK

REACTIONS (1)
  - Abdominal pain [Not Recovered/Not Resolved]
